FAERS Safety Report 19074065 (Version 1)
Quarter: 2021Q1

REPORT INFORMATION
  Report Type: Spontaneous
  Country: BE (occurrence: BE)
  Receive Date: 20210330
  Receipt Date: 20210330
  Transmission Date: 20210420
  Serious: Yes (Disabling, Other)
  Sender: FDA-Public Use
  Company Number: BE-UCBSA-2021013467

PATIENT
  Age: 61 Year
  Sex: Female

DRUGS (2)
  1. CIMZIA [Suspect]
     Active Substance: CERTOLIZUMAB PEGOL
     Indication: ANKYLOSING SPONDYLITIS
  2. HUMIRA [Suspect]
     Active Substance: ADALIMUMAB
     Indication: ANKYLOSING SPONDYLITIS
     Dosage: UNK
     Route: 058
     Dates: end: 2014

REACTIONS (6)
  - Arthritis [Unknown]
  - Pain [Not Recovered/Not Resolved]
  - Joint ankylosis [Unknown]
  - Disability [Not Recovered/Not Resolved]
  - Drug hypersensitivity [Unknown]
  - Connective tissue inflammation [Unknown]
